FAERS Safety Report 10109710 (Version 2)
Quarter: 2014Q2

REPORT INFORMATION
  Report Type: Spontaneous
  Country: PT (occurrence: PT)
  Receive Date: 20140425
  Receipt Date: 20140507
  Transmission Date: 20141212
  Serious: Yes (Other)
  Sender: FDA-Public Use
  Company Number: PT-BAYER-2014-056736

PATIENT
  Age: 28 Year
  Sex: Female

DRUGS (1)
  1. CIPROXINA [Suspect]
     Indication: HAEMORRHOIDS
     Dosage: 500 MG, BID
     Route: 048
     Dates: start: 20140408

REACTIONS (5)
  - Dry skin [Recovered/Resolved]
  - Skin discolouration [Recovered/Resolved]
  - Pruritus [Recovered/Resolved]
  - Rash generalised [Recovering/Resolving]
  - Rash erythematous [Recovered/Resolved]
